FAERS Safety Report 8008962-0 (Version None)
Quarter: 2011Q4

REPORT INFORMATION
  Report Type: 
  Country: None (occurrence: None)
  Receive Date: 20111227
  Receipt Date: 20111110
  Transmission Date: 20120403
  Serious: No
  Sender: FDA-Public Use
  Company Number: US-BAYER-2011-109908

PATIENT
  Sex: Male

DRUGS (7)
  1. CRESTOR [Concomitant]
  2. BENAZEPRIL HYDROCHLORIDE [Concomitant]
  3. LEVITRA [Suspect]
     Indication: ERECTILE DYSFUNCTION
     Dosage: 20 MG, QD
     Dates: start: 20111029
  4. NEBIVOLOL HCL [Concomitant]
  5. ASPIRIN [Concomitant]
  6. STAXYN [Suspect]
     Indication: ERECTILE DYSFUNCTION
     Dosage: 2 DF, UNK
     Route: 048
     Dates: start: 20111105
  7. PLAVIX [Concomitant]

REACTIONS (1)
  - ERECTILE DYSFUNCTION [None]
